FAERS Safety Report 6569002-3 (Version None)
Quarter: 2010Q1

REPORT INFORMATION
  Report Type: 
  Country: None (occurrence: None)
  Receive Date: 20100203
  Receipt Date: 20100201
  Transmission Date: 20100710
  Serious: Yes (Other)
  Sender: FDA-Public Use
  Company Number: US-SP-2010-00097

PATIENT
  Age: 42 Year
  Sex: Female

DRUGS (2)
  1. TUBERSOL [Suspect]
     Indication: TUBERCULIN TEST
     Route: 023
     Dates: start: 20100105, end: 20100105
  2. TUBERSOL [Suspect]
     Route: 023
     Dates: start: 20100105, end: 20100105

REACTIONS (2)
  - ANAPHYLACTIC REACTION [None]
  - EXPIRED DRUG ADMINISTERED [None]
